FAERS Safety Report 8962723 (Version 2)
Quarter: 2013Q1

REPORT INFORMATION
  Report Type: Report from Study
  Country: US (occurrence: US)
  Receive Date: 20121214
  Receipt Date: 20130122
  Transmission Date: 20140127
  Serious: No
  Sender: FDA-Public Use
  Company Number: US-VERTEX PHARMACEUTICALS INC.-2012-025760

PATIENT
  Age: 61 Year
  Sex: Female
  Weight: 76 kg

DRUGS (8)
  1. VX-950 (TELAPREVIR) [Suspect]
     Indication: HEPATITIS C
     Dosage: 750 MG, TID
     Route: 048
  2. PEGASYS [Suspect]
     Indication: HEPATITIS C
     Dosage: 180 ?G, UNK
  3. RIBAPAK [Suspect]
     Indication: HEPATITIS C
     Dosage: 1200/DAY
  4. ESCITALOPRAM [Concomitant]
     Dosage: 20 MG, UNK
  5. VITAMIN C                          /00008001/ [Concomitant]
     Dosage: 500 MG, UNK
  6. FISH OIL [Concomitant]
  7. CALCIUM [Concomitant]
     Dosage: 500 MG, UNK
  8. GLUCOSAMINE [Concomitant]

REACTIONS (4)
  - Headache [Unknown]
  - Fatigue [Unknown]
  - Nausea [Unknown]
  - Diarrhoea [Unknown]
